FAERS Safety Report 11383826 (Version 2)
Quarter: 2015Q3

REPORT INFORMATION
  Report Type: Spontaneous
  Country: FI (occurrence: FI)
  Receive Date: 20150814
  Receipt Date: 20150826
  Transmission Date: 20151125
  Serious: Yes (Hospitalization)
  Sender: FDA-Public Use
  Company Number: FI-ASTRAZENECA-2015SE76711

PATIENT
  Age: 71 Year
  Sex: Male

DRUGS (7)
  1. LOSARTAN. [Concomitant]
     Active Substance: LOSARTAN
     Dates: start: 20150316
  2. ATORVASTATIN [Concomitant]
     Active Substance: ATORVASTATIN
     Dates: start: 20150316
  3. DINIT (NITRO) [Concomitant]
     Dosage: AS REQUIRED
     Dates: start: 20150316
  4. OMNIC [Concomitant]
     Active Substance: TAMSULOSIN HYDROCHLORIDE
  5. PRIMASPAM [Concomitant]
     Dates: start: 20150316
  6. BRILIQUE [Suspect]
     Active Substance: TICAGRELOR
     Indication: MYOCARDIAL INFARCTION
     Route: 048
     Dates: start: 20150310
  7. BISOPROLOL [Concomitant]
     Active Substance: BISOPROLOL
     Dates: start: 20150316

REACTIONS (6)
  - Conjunctival haemorrhage [Unknown]
  - Ocular hyperaemia [Unknown]
  - Contusion [Unknown]
  - Dyspnoea [Unknown]
  - Eye swelling [Unknown]
  - Haematochezia [Unknown]

NARRATIVE: CASE EVENT DATE: 20150726
